FAERS Safety Report 22728836 (Version 4)
Quarter: 2024Q2

REPORT INFORMATION
  Report Type: Spontaneous
  Country: US (occurrence: US)
  Receive Date: 20230720
  Receipt Date: 20240628
  Transmission Date: 20240716
  Serious: Yes (Hospitalization, Other)
  Sender: FDA-Public Use
  Company Number: US-ABBVIE-5334125

PATIENT
  Age: 56 Year
  Sex: Female

DRUGS (2)
  1. ARMOUR THYROID [Suspect]
     Active Substance: THYROID, PORCINE
     Indication: Hypothyroidism
     Dosage: 60 MG, FORM STRENGTH: 60 MILLIGRAM
     Route: 048
     Dates: start: 2012
  2. SYNTHROID [Concomitant]
     Active Substance: LEVOTHYROXINE SODIUM
     Indication: Product used for unknown indication

REACTIONS (20)
  - Hospitalisation [Unknown]
  - Choking [Unknown]
  - COVID-19 [Unknown]
  - Accident [Unknown]
  - Loss of consciousness [Unknown]
  - Impaired quality of life [Unknown]
  - Dysphagia [Unknown]
  - Product use complaint [Unknown]
  - Heart rate decreased [Unknown]
  - Thyroid hormones decreased [Unknown]
  - Intensive care [Unknown]
  - Dizziness [Unknown]
  - Mitral valve disease [Unknown]
  - General symptom [Unknown]
  - Asthenia [Unknown]
  - Unevaluable event [Unknown]
  - Atrial tachycardia [Unknown]
  - Syncope [Unknown]
  - Lyme disease [Unknown]
  - Cardiac disorder [Unknown]

NARRATIVE: CASE EVENT DATE: 20220101
